FAERS Safety Report 7299795-1 (Version None)
Quarter: 2011Q1

REPORT INFORMATION
  Report Type: 
  Country: None (occurrence: None)
  Receive Date: 20110217
  Receipt Date: 20110209
  Transmission Date: 20110831
  Serious: Yes (Hospitalization, Other)
  Sender: FDA-Public Use
  Company Number: US-B.I. PHARMACEUTICALS,INC./RIDGEFIELD-2011-BP-02465BP

PATIENT
  Age: 81 Year
  Sex: Male

DRUGS (4)
  1. PRADAXA [Suspect]
     Indication: ATRIAL FIBRILLATION
     Dosage: 300 MG
  2. DRONEDARONE [Suspect]
     Indication: ATRIAL FIBRILLATION
     Dosage: 800 MG
     Route: 048
     Dates: start: 20110101
  3. ALDACTONE [Concomitant]
  4. LASIX [Concomitant]

REACTIONS (13)
  - URINE OUTPUT DECREASED [None]
  - RENAL FAILURE ACUTE [None]
  - DYSPNOEA [None]
  - PROTHROMBIN LEVEL INCREASED [None]
  - HYPERKALAEMIA [None]
  - DRUG INTERACTION [None]
  - ACTIVATED PARTIAL THROMBOPLASTIN TIME PROLONGED [None]
  - LUNG DISORDER [None]
  - CREATININE RENAL CLEARANCE DECREASED [None]
  - URINARY RETENTION [None]
  - ACIDOSIS [None]
  - HAEMORRHAGE [None]
  - BLOOD UREA INCREASED [None]
